FAERS Safety Report 8307012-6 (Version None)
Quarter: 2012Q2

REPORT INFORMATION
  Report Type: 
  Country: None (occurrence: None)
  Receive Date: 20120424
  Receipt Date: 20120416
  Transmission Date: 20120825
  Serious: Yes (Other)
  Sender: FDA-Public Use
  Company Number: PHEH2012US008195

PATIENT
  Age: 17 Year
  Sex: Male

DRUGS (2)
  1. EXJADE [Suspect]
  2. ANTIEPILEPTICS [Concomitant]

REACTIONS (3)
  - LIVER FUNCTION TEST ABNORMAL [None]
  - CEREBROVASCULAR ACCIDENT [None]
  - ABDOMINAL DISCOMFORT [None]
